FAERS Safety Report 18460815 (Version 1)
Quarter: 2020Q4

REPORT INFORMATION
  Report Type: Spontaneous
  Country: US (occurrence: US)
  Receive Date: 20201104
  Receipt Date: 20201104
  Transmission Date: 20210114
  Serious: Yes (Hospitalization)
  Sender: FDA-Public Use
  Company Number: US-GW PHARMA-202010USGW03529

PATIENT

DRUGS (6)
  1. BOTOX [Concomitant]
     Active Substance: ONABOTULINUMTOXINA
     Indication: PRODUCT USED FOR UNKNOWN INDICATION
     Dosage: UNK
     Route: 065
  2. GABAPENTIN. [Concomitant]
     Active Substance: GABAPENTIN
     Indication: DYSTONIA
     Dosage: UNK
     Route: 065
     Dates: end: 202009
  3. TETRABENAZINE. [Concomitant]
     Active Substance: TETRABENAZINE
     Indication: DYSTONIA
     Dosage: UNK
     Route: 065
     Dates: end: 202009
  4. GABAPENTIN. [Concomitant]
     Active Substance: GABAPENTIN
     Dosage: DOSE INCREASED
     Route: 065
     Dates: start: 202009
  5. EPIDIOLEX [Suspect]
     Active Substance: CANNABIDIOL
     Indication: EPILEPSY
     Dosage: 240 MILLIGRAM, BID (EPIDIOLEX WAS FIRST SHIPPED ON 24-JUL-2020)
     Dates: start: 202007
  6. TETRABENAZINE. [Concomitant]
     Active Substance: TETRABENAZINE
     Dosage: DOSE INCREASED
     Route: 065
     Dates: start: 202009

REACTIONS (2)
  - Infection [Recovered/Resolved]
  - Dystonia [Recovered/Resolved]

NARRATIVE: CASE EVENT DATE: 20200914
